FAERS Safety Report 13070676 (Version 3)
Quarter: 2019Q2

REPORT INFORMATION
  Report Type: Spontaneous
  Country: FR (occurrence: FR)
  Receive Date: 20161229
  Receipt Date: 20190425
  Transmission Date: 20190711
  Serious: Yes (Death, Life-Threatening, Other)
  Sender: FDA-Public Use
  Company Number: FR-BRISTOL-MYERS SQUIBB COMPANY-BMS-2016-109572

PATIENT
  Age: 33 Year
  Sex: Male

DRUGS (5)
  1. BRENTUXIMAB [Concomitant]
     Active Substance: BRENTUXIMAB VEDOTIN
     Indication: HODGKIN^S DISEASE
     Dosage: UNK
     Route: 065
     Dates: start: 201603, end: 201606
  2. OPDIVO [Suspect]
     Active Substance: NIVOLUMAB
     Indication: HODGKIN^S DISEASE
     Dosage: 3 MILLIGRAM/KILOGRAM, Q2WK
     Route: 065
     Dates: start: 201603, end: 201606
  3. VINBLASTINE [Concomitant]
     Active Substance: VINBLASTINE
     Indication: HODGKIN^S DISEASE
     Dosage: UNK
     Route: 065
     Dates: start: 201603, end: 201606
  4. NAVELBIN [Concomitant]
     Active Substance: VINORELBINE TARTRATE
     Indication: HODGKIN^S DISEASE
     Dosage: UNK
     Route: 065
     Dates: start: 201603, end: 201606
  5. GEMCITABINE [Concomitant]
     Active Substance: GEMCITABINE\GEMCITABINE HYDROCHLORIDE
     Indication: HODGKIN^S DISEASE
     Dosage: UNK
     Route: 065
     Dates: start: 201603, end: 201606

REACTIONS (13)
  - Colitis [Unknown]
  - Myocarditis [Unknown]
  - Hepatitis [Unknown]
  - Multiple organ dysfunction syndrome [Unknown]
  - Hypothyroidism [Unknown]
  - Acute kidney injury [Unknown]
  - Rhabdomyolysis [Unknown]
  - Cholestasis [Unknown]
  - Graft versus host disease [Fatal]
  - Interstitial lung disease [Unknown]
  - Pancreatitis acute [Unknown]
  - Myositis [Unknown]
  - Dermatitis [Unknown]

NARRATIVE: CASE EVENT DATE: 201610
